FAERS Safety Report 17620793 (Version 1)
Quarter: 2020Q2

REPORT INFORMATION
  Report Type: Spontaneous
  Country: CN (occurrence: CN)
  Receive Date: 20200403
  Receipt Date: 20200403
  Transmission Date: 20200713
  Serious: Yes (Other)
  Sender: FDA-Public Use
  Company Number: CN-BAXTER-2020BAX007108

PATIENT
  Age: 52 Year
  Sex: Female
  Weight: 53 kg

DRUGS (7)
  1. ENDOXAN [Suspect]
     Active Substance: CYCLOPHOSPHAMIDE
     Indication: BREAST CANCER METASTATIC
     Dosage: CYCLOPHOSPHAMIDE + 0.9% NS 250 ML
     Route: 041
     Dates: start: 20200313, end: 20200313
  2. 0.9% SODIUM CHLORIDE INJECTION [Suspect]
     Active Substance: SODIUM CHLORIDE
     Dosage: PACLITAXEL (ALBUMIN BINDING TYPE) 0.2 GRAM +0.9% NS
     Route: 041
     Dates: start: 20200313, end: 20200313
  3. CAPECITABINE. [Suspect]
     Active Substance: CAPECITABINE
     Indication: BREAST CANCER METASTATIC
     Dosage: TABLET
     Route: 048
     Dates: start: 20200314, end: 20200319
  4. 0.9% SODIUM CHLORIDE INJECTION [Suspect]
     Active Substance: SODIUM CHLORIDE
     Dosage: PACLITAXEL (ALBUMIN BINDING TYPE) 0.2 GRAM +0.9% NS
     Route: 041
     Dates: start: 20200317, end: 20200317
  5. 0.9% SODIUM CHLORIDE INJECTION [Suspect]
     Active Substance: SODIUM CHLORIDE
     Indication: MEDICATION DILUTION
     Dosage: CYCLOPHOSPHAMIDE 1 GRAM + 0.9% NS
     Route: 041
     Dates: start: 20200313, end: 20200313
  6. PACLITAXEL. [Suspect]
     Active Substance: PACLITAXEL
     Dosage: PACLITAXEL (ALBUMIN BINDING TYPE) +0.9% NS 250 ML
     Route: 041
     Dates: start: 20200317, end: 20200317
  7. PACLITAXEL. [Suspect]
     Active Substance: PACLITAXEL
     Indication: BREAST CANCER METASTATIC
     Dosage: PACLITAXEL (ALBUMIN BINDING TYPE) +0.9% NS 250 ML
     Route: 041
     Dates: start: 20200313, end: 20200313

REACTIONS (1)
  - White blood cell count decreased [Recovering/Resolving]

NARRATIVE: CASE EVENT DATE: 20200319
